FAERS Safety Report 10044749 (Version 1)
Quarter: 2014Q1

REPORT INFORMATION
  Report Type: Spontaneous
  Country: GB (occurrence: None)
  Receive Date: 20140326
  Receipt Date: 20140326
  Transmission Date: 20141002
  Serious: Yes (Hospitalization)
  Sender: FDA-Public Use
  Company Number: GB-ALKEM-000538

PATIENT
  Age: 59 Year
  Sex: Male
  Weight: 104.77 kg

DRUGS (6)
  1. MYCOPHENOLATE MOFETIL [Suspect]
     Indication: ALVEOLITIS ALLERGIC
     Route: 048
     Dates: start: 201306
  2. MORPHINE SULFATE [Concomitant]
  3. LANSOPRAZOLE [Concomitant]
  4. PAVACOL-D [Concomitant]
  5. PREDNISONE [Concomitant]
  6. N-ACETYLCYSTEINE [Concomitant]

REACTIONS (3)
  - Pulmonary embolism [None]
  - Lower respiratory tract infection [None]
  - Off label use [None]
